FAERS Safety Report 4649641-7 (Version None)
Quarter: 2005Q2

REPORT INFORMATION
  Report Type: 
  Country: None (occurrence: None)
  Receive Date: 20050502
  Receipt Date: 20050421
  Transmission Date: 20051028
  Serious: Yes (Death)
  Sender: FDA-Public Use
  Company Number: JP-JNJFOC-20050302620

PATIENT
  Sex: Male

DRUGS (5)
  1. DUROTEP [Suspect]
     Indication: CANCER PAIN
     Route: 062
  2. MIXED AMINO ACID, CARBOHYDRATE, ELECTROLYTE, VITAMIN COMBINED DRUG [Concomitant]
     Route: 041
  3. MANGANESE CHLORIDE [Concomitant]
     Route: 041
  4. ZINC SULFATE [Concomitant]
     Route: 041
  5. SODIUM CHLORIDE [Concomitant]
     Dosage: 1 DOSAGE FORM/DAY
     Route: 041

REACTIONS (3)
  - CACHEXIA [None]
  - MALIGNANT NEOPLASM PROGRESSION [None]
  - RESPIRATORY DEPRESSION [None]
